FAERS Safety Report 18250038 (Version 1)
Quarter: 2020Q3

REPORT INFORMATION
  Report Type: Spontaneous
  Country: US (occurrence: US)
  Receive Date: 20200909
  Receipt Date: 20200909
  Transmission Date: 20201103
  Serious: Yes (Death, Other)
  Sender: FDA-Public Use
  Company Number: US-GILEAD-2020-0494220

PATIENT
  Age: 80 Year
  Sex: Female

DRUGS (17)
  1. METOPROLOL. [Concomitant]
     Active Substance: METOPROLOL
  2. INSULIN [Concomitant]
     Active Substance: INSULIN NOS
  3. VITAMIN C [Concomitant]
     Active Substance: ASCORBIC ACID
  4. CEFTRIAXONE. [Concomitant]
     Active Substance: CEFTRIAXONE
  5. CEFEPIME [Concomitant]
     Active Substance: CEFEPIME HYDROCHLORIDE
  6. VANCOMYCIN [Concomitant]
     Active Substance: VANCOMYCIN
  7. AMIODARONE [Concomitant]
     Active Substance: AMIODARONE
  8. DEXAMETHASONE. [Concomitant]
     Active Substance: DEXAMETHASONE
  9. LASIX [Concomitant]
     Active Substance: FUROSEMIDE
  10. DECADRON [Concomitant]
     Active Substance: DEXAMETHASONE
  11. GABAPENTIN. [Concomitant]
     Active Substance: GABAPENTIN
  12. LOVENOX HP [Concomitant]
     Active Substance: ENOXAPARIN SODIUM
  13. SEROQUEL [Concomitant]
     Active Substance: QUETIAPINE FUMARATE
  14. REMDESIVIR. [Suspect]
     Active Substance: REMDESIVIR
     Indication: COVID-19 PNEUMONIA
     Dosage: UNK
     Route: 065
     Dates: start: 20200826, end: 20200830
  15. PLASMA [Concomitant]
     Active Substance: HUMAN PLASMA
  16. DILTIAZEM. [Concomitant]
     Active Substance: DILTIAZEM
  17. MORPHINE [Concomitant]
     Active Substance: MORPHINE

REACTIONS (2)
  - General physical health deterioration [Not Recovered/Not Resolved]
  - Death [Fatal]

NARRATIVE: CASE EVENT DATE: 20200906
